FAERS Safety Report 19267135 (Version 9)
Quarter: 2022Q3

REPORT INFORMATION
  Report Type: Spontaneous
  Country: US (occurrence: US)
  Receive Date: 20210517
  Receipt Date: 20220809
  Transmission Date: 20221027
  Serious: No
  Sender: FDA-Public Use
  Company Number: US-PFIZER INC-2021241083

PATIENT
  Age: 73 Year
  Sex: Female

DRUGS (4)
  1. IBRANCE [Suspect]
     Active Substance: PALBOCICLIB
     Indication: Breast cancer metastatic
     Dosage: 75 MG
     Dates: start: 201908
  2. IBRANCE [Suspect]
     Active Substance: PALBOCICLIB
     Indication: Chemotherapy
     Dosage: 100 MG
  3. IBRANCE [Suspect]
     Active Substance: PALBOCICLIB
     Indication: Nausea
  4. IBRANCE [Suspect]
     Active Substance: PALBOCICLIB
     Indication: Vomiting

REACTIONS (9)
  - Neoplasm progression [Unknown]
  - Insomnia [Unknown]
  - Sciatic nerve injury [Unknown]
  - Weight decreased [Unknown]
  - Exposure to SARS-CoV-2 [Unknown]
  - Gastrointestinal disorder [Unknown]
  - Ulcer [Unknown]
  - Spinal stenosis [Unknown]
  - Anxiety [Unknown]
